FAERS Safety Report 24917487 (Version 1)
Quarter: 2025Q1

REPORT INFORMATION
  Report Type: Spontaneous
  Country: US (occurrence: US)
  Receive Date: 20250203
  Receipt Date: 20250203
  Transmission Date: 20250408
  Serious: Yes (Hospitalization, Other)
  Sender: JOHNSON AND JOHNSON
  Company Number: US-JNJFOC-20250189086

PATIENT
  Age: 33 Year
  Sex: Male

DRUGS (6)
  1. HALOPERIDOL [Suspect]
     Active Substance: HALOPERIDOL
     Indication: Generalised anxiety disorder
     Route: 065
  2. HALOPERIDOL [Suspect]
     Active Substance: HALOPERIDOL
     Indication: Major depression
  3. HALOPERIDOL [Suspect]
     Active Substance: HALOPERIDOL
     Indication: Attention deficit hyperactivity disorder
  4. HALOPERIDOL [Suspect]
     Active Substance: HALOPERIDOL
     Indication: Alcohol use disorder
  5. OLANZAPINE [Suspect]
     Active Substance: OLANZAPINE
     Indication: Product used for unknown indication
  6. QUETIAPINE [Suspect]
     Active Substance: QUETIAPINE
     Indication: Product used for unknown indication

REACTIONS (7)
  - Pneumonia aspiration [Recovered/Resolved]
  - Ischaemic hepatitis [Recovered/Resolved]
  - Deep vein thrombosis [Recovered/Resolved]
  - Neuroleptic malignant syndrome [Recovered/Resolved]
  - Secretion discharge [Recovered/Resolved]
  - Anaemia [Recovered/Resolved]
  - Off label use [Unknown]
